FAERS Safety Report 5149536-9 (Version None)
Quarter: 2006Q4

REPORT INFORMATION
  Report Type: 
  Country: None (occurrence: None)
  Receive Date: 20061113
  Receipt Date: 20060330
  Transmission Date: 20070319
  Serious: No
  Sender: FDA-Public Use
  Company Number: US-GLAXOSMITHKLINE-A0599743A

PATIENT
  Age: 64 Year
  Sex: Female

DRUGS (2)
  1. COREG [Suspect]
     Dosage: 3.125MG UNKNOWN
     Route: 048
  2. LISINOPRIL [Concomitant]

REACTIONS (1)
  - BLOOD PRESSURE DECREASED [None]
